FAERS Safety Report 24797894 (Version 1)
Quarter: 2025Q1

REPORT INFORMATION
  Report Type: Spontaneous
  Country: US (occurrence: US)
  Receive Date: 20250102
  Receipt Date: 20250102
  Transmission Date: 20250408
  Serious: No
  Sender: SANOFI AVENTIS
  Company Number: US-SA-2024SA384098

PATIENT
  Age: 60 Year
  Sex: Female

DRUGS (31)
  1. DUPIXENT [Suspect]
     Active Substance: DUPILUMAB
     Indication: Dermatitis atopic
     Route: 058
     Dates: start: 20240503
  2. PREGABALIN [Concomitant]
     Active Substance: PREGABALIN
  3. SUMATRIPTAN [Concomitant]
     Active Substance: SUMATRIPTAN
  4. LIDOCAINE [Concomitant]
     Active Substance: LIDOCAINE
  5. SELENIUM [Concomitant]
     Active Substance: SELENIUM
  6. BUPROPION [Concomitant]
     Active Substance: BUPROPION
  7. KETOROLAC [Concomitant]
     Active Substance: KETOROLAC TROMETHAMINE
  8. FLUOCINOLONE [Concomitant]
     Active Substance: FLUOCINOLONE
  9. COENZYME Q10 [Concomitant]
     Active Substance: DIETARY SUPPLEMENT\UBIDECARENONE
  10. TRAZODONE [Concomitant]
     Active Substance: TRAZODONE HYDROCHLORIDE
  11. ALCLOMETASONE [Concomitant]
     Active Substance: ALCLOMETASONE
  12. TACROLIMUS [Concomitant]
     Active Substance: TACROLIMUS
  13. PRASTERONE [Concomitant]
     Active Substance: PRASTERONE
  14. VENLAFAXINE [Concomitant]
     Active Substance: VENLAFAXINE HYDROCHLORIDE
  15. Olopadine [Concomitant]
  16. REXULTI [Concomitant]
     Active Substance: BREXPIPRAZOLE
  17. CALCIUM\MAGNESIUM [Concomitant]
     Active Substance: CALCIUM\MAGNESIUM
  18. PANTOPRAZOLE [Concomitant]
     Active Substance: PANTOPRAZOLE
  19. VITAMIN D3 [Concomitant]
     Active Substance: CHOLECALCIFEROL
  20. TOPIRAMATE [Concomitant]
     Active Substance: TOPIRAMATE
  21. KRILL OIL OMEGA 3 [Concomitant]
  22. IRON [Concomitant]
     Active Substance: IRON
  23. BIOTIN [Concomitant]
     Active Substance: BIOTIN
  24. BACLOFEN [Concomitant]
     Active Substance: BACLOFEN
  25. VITAMIN B12 [Concomitant]
     Active Substance: CYANOCOBALAMIN
  26. GLUCOSAMINE [Concomitant]
     Active Substance: GLUCOSAMINE
  27. BUTALBITAL, ACETAMINOPHEN, AND CAFFEINE [Concomitant]
     Active Substance: ACETAMINOPHEN\BUTALBITAL\CAFFEINE
  28. VITAMIN C [Concomitant]
     Active Substance: ASCORBIC ACID
  29. HYDROCODONE [Concomitant]
     Active Substance: HYDROCODONE
  30. SLEEP AID (DIPHENHYDRAMINE HYDROCHLORIDE) [Concomitant]
     Active Substance: DIPHENHYDRAMINE HYDROCHLORIDE
  31. 3,3^-DIINDOLYLMETHANE [Concomitant]
     Active Substance: 3,3^-DIINDOLYLMETHANE

REACTIONS (1)
  - Rotator cuff syndrome [Unknown]

NARRATIVE: CASE EVENT DATE: 20241226
